FAERS Safety Report 10230381 (Version 1)
Quarter: 2014Q2

REPORT INFORMATION
  Report Type: Spontaneous
  Country: US (occurrence: None)
  Receive Date: 20140610
  Receipt Date: 20140610
  Transmission Date: 20141212
  Serious: Yes (Other)
  Sender: FDA-Public Use
  Company Number: None

PATIENT
  Age: 53 Year
  Sex: Female
  Weight: 86.18 kg

DRUGS (2)
  1. DULOXETINE 60 MG. TARGET PHARMACY [Suspect]
     Indication: FIBROMYALGIA
     Dosage: 1 CAPSULE DAILY ONCE DAILY --
     Dates: start: 20140312, end: 20140509
  2. DULOXETINE 60 MG. TARGET PHARMACY [Suspect]
     Indication: DEPRESSION
     Dosage: 1 CAPSULE DAILY ONCE DAILY --
     Dates: start: 20140312, end: 20140509

REACTIONS (7)
  - Drug ineffective [None]
  - Depression [None]
  - Insomnia [None]
  - Pain [None]
  - Anxiety [None]
  - Suicidal ideation [None]
  - Product substitution issue [None]
